FAERS Safety Report 6397613-7 (Version None)
Quarter: 2009Q4

REPORT INFORMATION
  Report Type: 
  Country: None (occurrence: None)
  Receive Date: 20091012
  Receipt Date: 20091007
  Transmission Date: 20100525
  Serious: Yes (Death, Hospitalization)
  Sender: FDA-Public Use
  Company Number: PHHY2009IE37501

PATIENT
  Sex: Female

DRUGS (5)
  1. CLOZARIL [Suspect]
     Indication: SCHIZOPHRENIA
     Dosage: UNK
     Dates: start: 20090728, end: 20090908
  2. LEVOTHYROXINE SODIUM [Concomitant]
     Indication: HYPOTHYROIDISM
     Dosage: 75 MG
     Route: 048
  3. ASPIRIN [Concomitant]
     Indication: ANGIOPATHY
     Dosage: 75 MG
     Route: 048
  4. LANSOPRAZOLE [Concomitant]
     Indication: GASTROOESOPHAGEAL REFLUX DISEASE
     Dosage: 30 MG
     Route: 048
  5. BISOPROLOL [Concomitant]
     Indication: HYPERTENSION
     Dosage: 2.5 MG
     Route: 048

REACTIONS (2)
  - BRAIN NEOPLASM [None]
  - LETHARGY [None]
